FAERS Safety Report 5587039-8 (Version None)
Quarter: 2008Q1

REPORT INFORMATION
  Report Type: 
  Country: None (occurrence: None)
  Receive Date: 20080110
  Receipt Date: 20080103
  Transmission Date: 20080703
  Serious: Yes (Other)
  Sender: FDA-Public Use
  Company Number: B0360227A

PATIENT
  Age: 52 Year
  Sex: Female

DRUGS (3)
  1. PAROXETINE HYDROCHLORIDE [Suspect]
     Dosage: 20MG PER DAY
     Route: 065
     Dates: start: 19991029
  2. DIAZEPAM [Concomitant]
     Dosage: 2MG PER DAY
     Dates: start: 19991029
  3. CIPRAMIL [Concomitant]
     Dates: start: 20011221

REACTIONS (19)
  - AGITATION [None]
  - ANXIETY [None]
  - CONFUSIONAL STATE [None]
  - DEPRESSION [None]
  - DIABETES MELLITUS [None]
  - DIARRHOEA [None]
  - DIZZINESS [None]
  - DRUG WITHDRAWAL SYNDROME [None]
  - FATIGUE [None]
  - FLAT AFFECT [None]
  - HYPERACUSIS [None]
  - INFLUENZA LIKE ILLNESS [None]
  - INSOMNIA [None]
  - INTENTIONAL SELF-INJURY [None]
  - NAUSEA [None]
  - NIGHTMARE [None]
  - PHOTOSENSITIVITY REACTION [None]
  - SUICIDAL IDEATION [None]
  - VERTIGO [None]
